FAERS Safety Report 5279184-1 (Version None)
Quarter: 2007Q1

REPORT INFORMATION
  Report Type: 
  Country: None (occurrence: None)
  Receive Date: 20061208
  Receipt Date: 20050308
  Transmission Date: 20070707
  Serious: Yes (Hospitalization)
  Sender: FDA-Public Use
  Company Number: 2005UW02224

PATIENT
  Age: 52 Year
  Sex: Male
  Weight: 86.1834 kg

DRUGS (3)
  1. CRESTOR [Suspect]
     Indication: LIPIDS INCREASED
     Dosage: 10 MG PO
     Route: 048
     Dates: start: 20041001
  2. LIPITOR [Concomitant]
  3. ALBUTEROL [Concomitant]

REACTIONS (1)
  - NON-CARDIAC CHEST PAIN [None]
